FAERS Safety Report 7720833-3 (Version None)
Quarter: 2011Q3

REPORT INFORMATION
  Report Type: 
  Country: None (occurrence: None)
  Receive Date: 20110831
  Receipt Date: 20110825
  Transmission Date: 20111222
  Serious: Yes (Other)
  Sender: FDA-Public Use
  Company Number: US-BRISTOL-MYERS SQUIBB COMPANY-16001711

PATIENT
  Age: 41 Year
  Sex: Female

DRUGS (2)
  1. CYCLOPHOSPHAMIDE [Suspect]
     Dosage: 1DF=1.6 OR 1.7 MG/KG .
     Route: 048
  2. CYTOXAN [Suspect]
     Dosage: PREVIOUS 4 YEARS.

REACTIONS (3)
  - ARTHRALGIA [None]
  - LYMPHADENOPATHY [None]
  - IDIOPATHIC THROMBOCYTOPENIC PURPURA [None]
